FAERS Safety Report 7916859-7 (Version None)
Quarter: 2011Q4

REPORT INFORMATION
  Report Type: 
  Country: None (occurrence: None)
  Receive Date: 20111116
  Receipt Date: 20111031
  Transmission Date: 20120403
  Serious: Yes (Hospitalization)
  Sender: FDA-Public Use
  Company Number: US-SANOFI-AVENTIS-2011SA074796

PATIENT
  Sex: Female

DRUGS (1)
  1. DESMOPRESSIN ACETATE [Suspect]
     Route: 065

REACTIONS (2)
  - APNOEA [None]
  - HYPERSOMNIA [None]
